FAERS Safety Report 18579516 (Version 6)
Quarter: 2022Q2

REPORT INFORMATION
  Report Type: Spontaneous
  Country: CO (occurrence: CO)
  Receive Date: 20201204
  Receipt Date: 20220418
  Transmission Date: 20220721
  Serious: No
  Sender: FDA-Public Use
  Company Number: CO-PFIZER INC-2020469580

PATIENT
  Age: 13 Year
  Sex: Male

DRUGS (3)
  1. GENOTROPIN [Suspect]
     Active Substance: SOMATROPIN
     Indication: Underweight
     Dosage: 1.6 MG
     Route: 058
     Dates: start: 202007
  2. GENOTROPIN [Suspect]
     Active Substance: SOMATROPIN
     Indication: Short stature
     Dosage: 1.6 MG, DAILY
  3. LETROZOLE [Concomitant]
     Active Substance: LETROZOLE
     Indication: Epiphyses premature fusion
     Dosage: 2.5 MG

REACTIONS (6)
  - Injection site vesicles [Recovered/Resolved]
  - Injection site discolouration [Recovered/Resolved]
  - Device failure [Recovered/Resolved]
  - Device delivery system issue [Unknown]
  - Fatigue [Unknown]
  - Muscle fatigue [Unknown]

NARRATIVE: CASE EVENT DATE: 20200101
